FAERS Safety Report 7979046-2 (Version None)
Quarter: 2011Q4

REPORT INFORMATION
  Report Type: 
  Country: None (occurrence: None)
  Receive Date: 20111214
  Receipt Date: 20111213
  Transmission Date: 20120403
  Serious: No
  Sender: FDA-Public Use
  Company Number: US-PFIZER INC-2011303484

PATIENT
  Age: 50 Year
  Sex: Female
  Weight: 62.6 kg

DRUGS (4)
  1. PREMARIN [Concomitant]
     Indication: OFF LABEL USE
     Dosage: UNK
     Route: 067
  2. ESTRING [Suspect]
     Indication: OESTROGEN THERAPY
     Dosage: UNK
     Route: 067
     Dates: start: 20050101
  3. PREMARIN [Concomitant]
     Indication: CYSTITIS
  4. ESTRING [Suspect]
     Indication: CYSTITIS

REACTIONS (1)
  - VAGINAL ODOUR [None]
